FAERS Safety Report 11913695 (Version 1)
Quarter: 2016Q1

REPORT INFORMATION
  Report Type: Spontaneous
  Country: US (occurrence: US)
  Receive Date: 20160113
  Receipt Date: 20160113
  Transmission Date: 20160526
  Serious: Yes (Other)
  Sender: FDA-Public Use
  Company Number: US-PFIZER INC-2016012186

PATIENT
  Age: 6 Decade
  Sex: Male

DRUGS (1)
  1. AZULFIDINE [Suspect]
     Active Substance: SULFASALAZINE
     Indication: COLITIS ULCERATIVE
     Dosage: 500 MG, 4X/DAY
     Route: 048

REACTIONS (2)
  - Deafness [Not Recovered/Not Resolved]
  - Condition aggravated [Not Recovered/Not Resolved]
